FAERS Safety Report 5917616-3 (Version None)
Quarter: 2008Q4

REPORT INFORMATION
  Report Type: 
  Country: None (occurrence: None)
  Receive Date: 20081014
  Receipt Date: 20081002
  Transmission Date: 20090506
  Serious: Yes (Hospitalization)
  Sender: FDA-Public Use
  Company Number: JP-MERCK-0810USA01213

PATIENT
  Age: 56 Year
  Sex: Female

DRUGS (11)
  1. ZETIA [Suspect]
     Indication: HYPERCHOLESTEROLAEMIA
     Route: 048
     Dates: start: 20080401
  2. WARFARIN POTASSIUM [Concomitant]
     Route: 065
     Dates: start: 20060703
  3. SPIRONOLACTONE [Concomitant]
     Route: 065
     Dates: start: 20060703
  4. INDAPAMIDE [Concomitant]
     Route: 065
     Dates: start: 20060603
  5. TORSEMIDE [Concomitant]
     Route: 065
     Dates: start: 20060603
  6. ROSUVASTATIN CALCIUM [Concomitant]
     Route: 065
     Dates: start: 20060603
  7. IBUDILAST [Concomitant]
     Route: 065
  8. THEOPHYLLINE [Concomitant]
     Route: 065
  9. CARBOCYSTEINE [Concomitant]
     Route: 065
  10. AMBROXOL HYDROCHLORIDE [Concomitant]
     Route: 065
  11. MEQUITAZINE [Concomitant]
     Route: 065

REACTIONS (1)
  - CARDIAC FAILURE [None]
